FAERS Safety Report 9774809 (Version 3)
Quarter: 2014Q1

REPORT INFORMATION
  Report Type: Spontaneous
  Country: JP (occurrence: JP)
  Receive Date: 20131220
  Receipt Date: 20140113
  Transmission Date: 20141002
  Serious: Yes (Death, Hospitalization, Other)
  Sender: FDA-Public Use
  Company Number: JP-MPIJNJ-2013JNJ001321

PATIENT
  Sex: 0

DRUGS (11)
  1. VELCADE [Suspect]
     Indication: PLASMA CELL MYELOMA
     Dosage: 1.3 MG/M2, UNK
     Route: 058
     Dates: start: 20130730, end: 20131206
  2. LY2127399 [Suspect]
     Indication: PLASMA CELL MYELOMA
     Dosage: 300 MG, UNK
     Route: 042
     Dates: start: 20130730, end: 20131126
  3. DEXAMETHASONE [Suspect]
     Indication: PLASMA CELL MYELOMA
     Dosage: 20 MG, UNK
     Route: 048
     Dates: start: 20130730, end: 20131206
  4. BONALON [Concomitant]
     Indication: OSTEOPOROSIS
     Dosage: 35 MG, UNK
     Route: 048
     Dates: start: 20120507, end: 20131202
  5. ZOVIRAX                            /00587301/ [Concomitant]
     Indication: INFECTION PROPHYLAXIS
     Dosage: 200 MG, UNK
     Route: 048
     Dates: start: 20120507, end: 20131207
  6. NEXIUM                             /01479302/ [Concomitant]
     Indication: PROPHYLAXIS
     Dosage: 20 MG, UNK
     Route: 048
     Dates: start: 20130226, end: 20131207
  7. PANTOSIN [Concomitant]
     Indication: CONSTIPATION
     Dosage: 100 MG, UNK
     Route: 048
     Dates: start: 20120911, end: 20121207
  8. MAGMITT [Concomitant]
     Indication: CONSTIPATION
     Dosage: 110 MG, UNK
     Route: 048
     Dates: start: 20120911, end: 20131207
  9. BAKTAR [Concomitant]
     Indication: INFECTION PROPHYLAXIS
     Dosage: UNK
     Route: 048
     Dates: start: 20130705, end: 20131207
  10. DIFLUCAN [Concomitant]
     Indication: INFECTION PROPHYLAXIS
     Dosage: 100 MG, UNK
     Route: 048
     Dates: start: 20131030, end: 20131207
  11. XALATAN [Concomitant]
     Indication: GLAUCOMA
     Dosage: UNK
     Route: 047
     Dates: start: 20130617, end: 20131207

REACTIONS (5)
  - Subarachnoid haemorrhage [Fatal]
  - Subdural haematoma [Fatal]
  - Gastroenteritis [Not Recovered/Not Resolved]
  - Hyperglycaemia [Unknown]
  - Malaise [Unknown]
